FAERS Safety Report 24917094 (Version 1)
Quarter: 2025Q1

REPORT INFORMATION
  Report Type: Spontaneous
  Country: US (occurrence: US)
  Receive Date: 20250203
  Receipt Date: 20250203
  Transmission Date: 20250409
  Serious: Yes (Other)
  Sender: ORGANON
  Company Number: US-ORGANON-O2501USA003290

PATIENT
  Age: 19 Year
  Sex: Female
  Weight: 56.689 kg

DRUGS (1)
  1. NEXPLANON [Suspect]
     Active Substance: ETONOGESTREL
     Indication: Contraception
     Route: 059
     Dates: start: 20200624

REACTIONS (5)
  - Menometrorrhagia [Not Recovered/Not Resolved]
  - Amenorrhoea [Recovered/Resolved]
  - Vaginal haemorrhage [Unknown]
  - Product prescribing issue [Unknown]
  - Incorrect product administration duration [Unknown]

NARRATIVE: CASE EVENT DATE: 20200624
